FAERS Safety Report 7323293-X (Version None)
Quarter: 2011Q1

REPORT INFORMATION
  Report Type: 
  Country: None (occurrence: None)
  Receive Date: 20110301
  Receipt Date: 20110218
  Transmission Date: 20110831
  Serious: No
  Sender: FDA-Public Use
  Company Number: US-ROXANE LABORATORIES, INC.-2011-RO-00207RO

PATIENT
  Sex: Female

DRUGS (3)
  1. METOCLOPRAMIDE HCL [Suspect]
     Dates: start: 20011201, end: 20100701
  2. REGLAN [Suspect]
     Dates: start: 20011201, end: 20100701
  3. METOCLOPRAMIDE HCL [Suspect]
     Dates: start: 20011201, end: 20100701

REACTIONS (2)
  - TARDIVE DYSKINESIA [None]
  - EXTRAPYRAMIDAL DISORDER [None]
